FAERS Safety Report 7860566-6 (Version None)
Quarter: 2011Q4

REPORT INFORMATION
  Report Type: 
  Country: None (occurrence: None)
  Receive Date: 20111027
  Receipt Date: 20111017
  Transmission Date: 20120403
  Serious: Yes (Hospitalization)
  Sender: FDA-Public Use
  Company Number: US-BAYER-201042056NA

PATIENT
  Age: 36 Year
  Sex: Female
  Weight: 107.94 kg

DRUGS (14)
  1. MULTI-VITAMINS [Concomitant]
     Dosage: UNK
     Dates: start: 20080101
  2. DROSPIRENONE AND ETHINYL ESTRADIOL [Suspect]
     Indication: CONTRACEPTION
     Dosage: UNK
     Route: 048
     Dates: start: 20081201, end: 20091101
  3. DROSPIRENONE AND ETHINYL ESTRADIOL [Suspect]
     Indication: MENSTRUATION IRREGULAR
     Dosage: UNK
     Dates: start: 20090101, end: 20091101
  4. LISINOPRIL [Concomitant]
     Dosage: UNK
     Dates: start: 20080101
  5. AMITRIPTYLINE HCL [Concomitant]
     Dosage: 50 MG, UNK
     Dates: start: 20090803
  6. YAZ [Suspect]
     Indication: MENSTRUATION IRREGULAR
  7. METFORMIN HCL [Concomitant]
     Dosage: UNK
     Dates: start: 20080101
  8. IRON [Concomitant]
     Dosage: UNK
     Dates: start: 20080101
  9. CYCLOPHOSPHAMIDE [Concomitant]
     Dosage: 10 MG, UNK
     Dates: start: 20090915
  10. A/B OTIC DROPS [Concomitant]
     Dosage: UNK
     Dates: start: 20090803
  11. HYDROCHLOROTHIAZIDE [Concomitant]
     Dosage: 12.5 MG, UNK
     Dates: start: 20090803
  12. YASMIN [Suspect]
     Indication: MENSTRUATION IRREGULAR
  13. YAZ [Suspect]
     Indication: CONTRACEPTION
     Dosage: UNK
     Dates: start: 20081201
  14. YASMIN [Suspect]
     Indication: CONTRACEPTION
     Dosage: UNK
     Dates: start: 20090101, end: 20091101

REACTIONS (12)
  - PAIN [None]
  - HEMIPARESIS [None]
  - INJURY [None]
  - ANXIETY [None]
  - MENTAL DISORDER [None]
  - FEAR [None]
  - CEREBROVASCULAR ACCIDENT [None]
  - COMMUNICATION DISORDER [None]
  - FALL [None]
  - SPEECH DISORDER [None]
  - ANHEDONIA [None]
  - MOBILITY DECREASED [None]
